FAERS Safety Report 19715831 (Version 3)
Quarter: 2021Q4

REPORT INFORMATION
  Report Type: Report from Study
  Country: JP (occurrence: JP)
  Receive Date: 20210818
  Receipt Date: 20211130
  Transmission Date: 20220303
  Serious: Yes (Other)
  Sender: FDA-Public Use
  Company Number: JP-BAUSCH-BL-2021-027643

PATIENT
  Age: 7 Month
  Sex: Male
  Weight: 5.8 kg

DRUGS (21)
  1. DEMSER [Suspect]
     Active Substance: METYROSINE
     Indication: Blood catecholamines increased
     Dosage: EVERYDAY
     Route: 048
     Dates: start: 20201020, end: 20201022
  2. DEMSER [Suspect]
     Active Substance: METYROSINE
     Indication: Preoperative care
     Route: 048
     Dates: start: 20201023, end: 20201026
  3. DEMSER [Suspect]
     Active Substance: METYROSINE
     Route: 048
     Dates: start: 20201027, end: 20201105
  4. DEMSER [Suspect]
     Active Substance: METYROSINE
     Route: 048
     Dates: start: 20201106, end: 20201110
  5. DEMSER [Suspect]
     Active Substance: METYROSINE
     Route: 048
     Dates: start: 20201111, end: 20201216
  6. DEMSER [Suspect]
     Active Substance: METYROSINE
     Route: 048
     Dates: start: 20201217, end: 20201224
  7. DEMSER [Suspect]
     Active Substance: METYROSINE
     Route: 048
     Dates: start: 20201225, end: 20210106
  8. DEMSER [Suspect]
     Active Substance: METYROSINE
     Route: 048
     Dates: start: 20210107, end: 20210109
  9. DEMSER [Suspect]
     Active Substance: METYROSINE
     Route: 048
     Dates: start: 20210110, end: 20210128
  10. DEMSER [Suspect]
     Active Substance: METYROSINE
     Route: 048
     Dates: start: 20210129, end: 20210203
  11. DEMSER [Suspect]
     Active Substance: METYROSINE
     Route: 048
     Dates: start: 20210204, end: 20210208
  12. DOXAZOSIN MESYLATE [Concomitant]
     Active Substance: DOXAZOSIN MESYLATE
     Indication: Product used for unknown indication
     Dates: start: 20201020, end: 20210208
  13. NIFEDIPINE [Concomitant]
     Active Substance: NIFEDIPINE
     Indication: Product used for unknown indication
     Dates: start: 20201020, end: 20210208
  14. NICARDIPINE HYDROCHLORIDE [Concomitant]
     Active Substance: NICARDIPINE HYDROCHLORIDE
     Indication: Product used for unknown indication
  15. ENALAPRIL MALEATE [Concomitant]
     Active Substance: ENALAPRIL MALEATE
     Indication: Product used for unknown indication
     Dates: start: 20210113, end: 20210208
  16. DIAZEPAM [Concomitant]
     Active Substance: DIAZEPAM
     Indication: Product used for unknown indication
     Dates: start: 20201026, end: 20210207
  17. LACTULOSE [Concomitant]
     Active Substance: LACTULOSE
     Indication: Product used for unknown indication
     Dates: start: 20201118, end: 20210207
  18. VINCRISTINE SULFATE [Concomitant]
     Active Substance: VINCRISTINE SULFATE
     Indication: Product used for unknown indication
     Dates: start: 20201118, end: 20210118
  19. CYCLOPHOSPHAMIDE [Concomitant]
     Active Substance: CYCLOPHOSPHAMIDE
     Indication: Product used for unknown indication
     Dates: start: 20201125, end: 20210125
  20. PIRARUBICIN HYDROCHLORIDE [Concomitant]
     Active Substance: PIRARUBICIN HYDROCHLORIDE
     Indication: Product used for unknown indication
     Dates: start: 20201218, end: 20201218
  21. POTASSIUM GLUCONATE [Concomitant]
     Active Substance: POTASSIUM GLUCONATE
     Indication: Product used for unknown indication
     Dates: start: 20201104, end: 20210208

REACTIONS (3)
  - Hypokalaemia [Recovered/Resolved]
  - Crystalluria [Recovered/Resolved]
  - Off label use [Unknown]

NARRATIVE: CASE EVENT DATE: 20201023
